FAERS Safety Report 7445058-0 (Version None)
Quarter: 2011Q2

REPORT INFORMATION
  Report Type: 
  Country: None (occurrence: None)
  Receive Date: 20110429
  Receipt Date: 20110419
  Transmission Date: 20111010
  Serious: Yes (Other)
  Sender: FDA-Public Use
  Company Number: PHFR2010IE00823

PATIENT
  Sex: Male

DRUGS (1)
  1. CLOZARIL [Suspect]
     Dates: start: 20080215, end: 20100527

REACTIONS (7)
  - APATHY [None]
  - SEDATION [None]
  - DRUG INEFFECTIVE [None]
  - THOUGHT INSERTION [None]
  - WEIGHT INCREASED [None]
  - SCHIZOPHRENIA [None]
  - PARANOIA [None]
